FAERS Safety Report 6201152-3 (Version None)
Quarter: 2009Q2

REPORT INFORMATION
  Report Type: 
  Country: None (occurrence: None)
  Receive Date: 20090526
  Receipt Date: 20090513
  Transmission Date: 20091009
  Serious: Yes (Hospitalization)
  Sender: FDA-Public Use
  Company Number: ES-JNJFOC-20090503473

PATIENT
  Age: 67 Year
  Sex: Female

DRUGS (8)
  1. REMICADE [Suspect]
     Indication: RHEUMATOID ARTHRITIS
     Route: 042
  2. LEFLUNOMIDE [Interacting]
     Indication: RHEUMATOID ARTHRITIS
  3. PREDNISONE [Interacting]
     Indication: RHEUMATOID ARTHRITIS
     Route: 048
  4. SYMBICORT [Interacting]
     Indication: RHEUMATOID ARTHRITIS
     Route: 055
  5. METAMIZOLE [Concomitant]
  6. ACETYLCYSTEINE [Concomitant]
  7. DIAZEPAM [Concomitant]
  8. TRAMADOL HCL [Concomitant]

REACTIONS (3)
  - DRUG INTERACTION [None]
  - RESPIRATORY FAILURE [None]
  - RESPIRATORY TRACT INFECTION [None]
